FAERS Safety Report 24449765 (Version 1)
Quarter: 2024Q4

REPORT INFORMATION
  Report Type: Spontaneous
  Country: US (occurrence: None)
  Receive Date: 20241016
  Receipt Date: 20241016
  Transmission Date: 20250114
  Serious: Yes (Other)
  Sender: Public
  Company Number: None

PATIENT
  Age: 70 Year
  Sex: Female

DRUGS (4)
  1. LENALIDOMIDE [Suspect]
     Active Substance: LENALIDOMIDE
     Indication: Plasma cell myeloma
     Route: 048
     Dates: start: 20240706
  2. ASPIRIN 81 TAB 81MG EC [Concomitant]
  3. IFEROSUL TAB 325MG [Concomitant]
  4. MULTIVITAMIN TAB ADLT 50+ [Concomitant]

REACTIONS (2)
  - Surgery [None]
  - Therapy interrupted [None]

NARRATIVE: CASE EVENT DATE: 20240828
